FAERS Safety Report 8869792 (Version 3)
Quarter: 2013Q1

REPORT INFORMATION
  Report Type: Spontaneous
  Country: DE (occurrence: DE)
  Receive Date: 20121028
  Receipt Date: 20130211
  Transmission Date: 20140127
  Serious: Yes (Hospitalization)
  Sender: FDA-Public Use
  Company Number: DE-JNJFOC-20121013303

PATIENT
  Age: 75 Year
  Sex: Female
  Weight: 97 kg

DRUGS (10)
  1. XARELTO [Suspect]
     Indication: ATRIAL FIBRILLATION
     Route: 065
  2. XARELTO [Suspect]
     Indication: CEREBROVASCULAR ACCIDENT PROPHYLAXIS
     Route: 065
  3. PROTON PUMP INHIBITORS [Concomitant]
     Route: 065
  4. DIGITOXIN [Concomitant]
     Route: 065
  5. SIMVASTATIN [Concomitant]
     Route: 065
  6. BISOPROLOL [Concomitant]
     Route: 065
  7. HCT [Concomitant]
     Route: 065
  8. VALSARTAN [Concomitant]
     Route: 065
  9. TOREM [Concomitant]
     Route: 065
  10. METAMIZOL [Concomitant]
     Route: 065

REACTIONS (5)
  - Cardiac failure [Recovering/Resolving]
  - Cerebrovascular accident [Recovering/Resolving]
  - Vascular encephalopathy [Unknown]
  - Depressed mood [Unknown]
  - Drug ineffective [Unknown]
